FAERS Safety Report 19690242 (Version 1)
Quarter: 2021Q3

REPORT INFORMATION
  Report Type: Spontaneous
  Country: US (occurrence: US)
  Receive Date: 20210811
  Receipt Date: 20210811
  Transmission Date: 20211014
  Serious: No
  Sender: FDA-Public Use
  Company Number: None

PATIENT
  Age: 60 Year
  Sex: Female
  Weight: 67.13 kg

DRUGS (1)
  1. ACTEMRA ACTPEN [Suspect]
     Active Substance: TOCILIZUMAB
     Indication: RHEUMATOID ARTHRITIS
     Dosage: INJECT 162MG SUBCUTANEOUSLY ONCE A WEEK AS DIRECTED. ?NEEDS TO BE REFRIGERATED
     Route: 058
     Dates: start: 202106

REACTIONS (2)
  - Pneumonia [None]
  - Urinary tract infection [None]
